FAERS Safety Report 4445725-7 (Version None)
Quarter: 2004Q3

REPORT INFORMATION
  Report Type: 
  Country: None (occurrence: None)
  Receive Date: 20040910
  Receipt Date: 20040421
  Transmission Date: 20050211
  Serious: Yes (Hospitalization)
  Sender: FDA-Public Use
  Company Number: PHHO2004JP05938

PATIENT
  Age: 92 Year
  Sex: Female
  Weight: 44 kg

DRUGS (5)
  1. DIOVAN [Suspect]
     Dosage: 20 MG, QD
     Route: 048
     Dates: start: 20030320, end: 20031208
  2. LASIX [Concomitant]
     Indication: CARDIAC FAILURE
     Dosage: 20 MG, QD
     Route: 048
     Dates: start: 20020820
  3. DIGOSIN [Concomitant]
     Indication: CARDIAC FAILURE
     Dosage: 125 UG, UNK
     Route: 048
     Dates: start: 20020820
  4. DAONIL [Concomitant]
     Indication: DIABETES MELLITUS
     Dosage: 2.5 MG, UNK
     Route: 048
     Dates: start: 20020820
  5. ZYLORIC [Concomitant]
     Indication: HYPERURICAEMIA
     Dosage: 100 MG, UNK
     Route: 048
     Dates: start: 20020820

REACTIONS (6)
  - CARDIAC FAILURE [None]
  - CARDIOMEGALY [None]
  - DIZZINESS POSTURAL [None]
  - HYPOTENSION [None]
  - MYOCARDIAL INFARCTION [None]
  - TROPONIN T INCREASED [None]
